FAERS Safety Report 4300542-3 (Version None)
Quarter: 2004Q1

REPORT INFORMATION
  Report Type: 
  Country: None (occurrence: None)
  Receive Date: 20040220
  Receipt Date: 20040211
  Transmission Date: 20041129
  Serious: Yes (Hospitalization)
  Sender: FDA-Public Use
  Company Number: PHEH2004US01934

PATIENT
  Age: 54 Year
  Sex: Male

DRUGS (1)
  1. GLEEVEC [Suspect]
     Indication: LEUKAEMIA
     Route: 048

REACTIONS (2)
  - CARDIAC DISCOMFORT [None]
  - CORONARY ARTERY OCCLUSION [None]
